FAERS Safety Report 24153518 (Version 1)
Quarter: 2024Q3

REPORT INFORMATION
  Report Type: Spontaneous
  Country: FR (occurrence: FR)
  Receive Date: 20240730
  Receipt Date: 20240730
  Transmission Date: 20241016
  Serious: Yes (Other)
  Sender: JOHNSON AND JOHNSON
  Company Number: FR-JNJFOC-20240752216

PATIENT
  Sex: Female

DRUGS (1)
  1. RYBREVANT [Suspect]
     Active Substance: AMIVANTAMAB-VMJW
     Indication: Non-small cell lung cancer metastatic
     Route: 065

REACTIONS (6)
  - Loss of consciousness [Unknown]
  - Interstitial lung disease [Unknown]
  - Infusion related reaction [Unknown]
  - Bradycardia [Unknown]
  - Blood pressure decreased [Unknown]
  - Rash [Unknown]
